FAERS Safety Report 5628483-X (Version None)
Quarter: 2008Q1

REPORT INFORMATION
  Report Type: 
  Country: None (occurrence: None)
  Receive Date: 20080215
  Receipt Date: 20080205
  Transmission Date: 20080703
  Serious: Yes (Other)
  Sender: FDA-Public Use
  Company Number: US-PFIZER INC-2007108939

PATIENT
  Sex: Female

DRUGS (4)
  1. LYRICA [Suspect]
     Indication: FIBROMYALGIA
  2. CELEBREX [Suspect]
     Indication: ARTHRITIS
  3. DOXEPIN HCL [Suspect]
  4. LEXAPRO [Concomitant]
     Dates: end: 20080109

REACTIONS (11)
  - ARTHRITIS [None]
  - ASTHENIA [None]
  - BRONCHITIS [None]
  - CONFUSIONAL STATE [None]
  - FATIGUE [None]
  - HEADACHE [None]
  - PAIN [None]
  - PAIN IN EXTREMITY [None]
  - SYSTEMIC LUPUS ERYTHEMATOSUS [None]
  - THINKING ABNORMAL [None]
  - VISUAL DISTURBANCE [None]
